FAERS Safety Report 22615824 (Version 1)
Quarter: 2023Q2

REPORT INFORMATION
  Report Type: Spontaneous
  Country: CA (occurrence: CA)
  Receive Date: 20230619
  Receipt Date: 20230619
  Transmission Date: 20230721
  Serious: Yes (Other)
  Sender: FDA-Public Use
  Company Number: CA-JNJFOC-20230633281

PATIENT
  Age: 29 Year
  Sex: Female
  Weight: 65 kg

DRUGS (7)
  1. REMICADE [Suspect]
     Active Substance: INFLIXIMAB
     Indication: Crohn^s disease
     Route: 041
  2. INFLIXIMAB [Suspect]
     Active Substance: INFLIXIMAB
     Indication: Crohn^s disease
     Route: 042
  3. INFLIXIMAB [Suspect]
     Active Substance: INFLIXIMAB
     Route: 042
  4. INFLIXIMAB [Suspect]
     Active Substance: INFLIXIMAB
     Route: 042
  5. CITALOPRAM [Concomitant]
     Active Substance: CITALOPRAM HYDROBROMIDE
     Route: 048
  6. PREDNISONE [Concomitant]
     Active Substance: PREDNISONE
  7. ERGOCALCIFEROL [Concomitant]
     Active Substance: ERGOCALCIFEROL
     Route: 048

REACTIONS (5)
  - Contusion [Not Recovered/Not Resolved]
  - Dehydration [Not Recovered/Not Resolved]
  - Condition aggravated [Not Recovered/Not Resolved]
  - Frequent bowel movements [Not Recovered/Not Resolved]
  - Fungal infection [Not Recovered/Not Resolved]
